FAERS Safety Report 18036642 (Version 1)
Quarter: 2020Q3

REPORT INFORMATION
  Report Type: Spontaneous
  Country: US (occurrence: US)
  Receive Date: 20200717
  Receipt Date: 20200717
  Transmission Date: 20201103
  Serious: Yes (Hospitalization)
  Sender: FDA-Public Use
  Company Number: None

PATIENT
  Sex: Male

DRUGS (7)
  1. SPRYCEL [Suspect]
     Active Substance: DASATINIB
     Indication: MYELOID LEUKAEMIA
     Route: 048
     Dates: start: 20170621
  2. MULTI VIT [Concomitant]
     Active Substance: VITAMINS
  3. LYRICA [Concomitant]
     Active Substance: PREGABALIN
  4. METFORMIN [Concomitant]
     Active Substance: METFORMIN HYDROCHLORIDE
  5. INVOKANA [Concomitant]
     Active Substance: CANAGLIFLOZIN
  6. ENALAPRIL [Concomitant]
     Active Substance: ENALAPRIL
  7. LANTUS [Concomitant]
     Active Substance: INSULIN GLARGINE

REACTIONS (2)
  - Tumour marker increased [None]
  - Drug ineffective [None]
